FAERS Safety Report 7760597-0 (Version None)
Quarter: 2011Q3

REPORT INFORMATION
  Report Type: 
  Country: None (occurrence: None)
  Receive Date: 20110919
  Receipt Date: 20110517
  Transmission Date: 20111222
  Serious: No
  Sender: FDA-Public Use
  Company Number: US-BAYER-2011-043035

PATIENT
  Age: 77 Year
  Sex: Female

DRUGS (1)
  1. ULTRAVIST 150 [Suspect]
     Dosage: 125 ML, ONCE
     Dates: start: 20110506

REACTIONS (2)
  - DYSPNOEA [None]
  - CHEST DISCOMFORT [None]
